FAERS Safety Report 13652615 (Version 1)
Quarter: 2017Q2

REPORT INFORMATION
  Report Type: Spontaneous
  Country: US (occurrence: US)
  Receive Date: 20170614
  Receipt Date: 20170614
  Transmission Date: 20170830
  Serious: No
  Sender: FDA-Public Use
  Company Number: US-ROCHE-1382088

PATIENT
  Age: 47 Year
  Sex: Female

DRUGS (2)
  1. XELODA [Suspect]
     Active Substance: CAPECITABINE
     Indication: RECTOSIGMOID CANCER
     Dosage: 2 AM AND 2 PM 14 DAY ON AND 7 DAY OFF
     Route: 048
     Dates: start: 20120812
  2. XELODA [Suspect]
     Active Substance: CAPECITABINE
     Indication: RECTAL CANCER

REACTIONS (1)
  - Nausea [Unknown]
